FAERS Safety Report 23411392 (Version 1)
Quarter: 2024Q1

REPORT INFORMATION
  Report Type: Spontaneous
  Country: CN (occurrence: CN)
  Receive Date: 20240117
  Receipt Date: 20240117
  Transmission Date: 20240409
  Serious: Yes (Other)
  Sender: FDA-Public Use
  Company Number: CN-PFIZER INC-202201011435

PATIENT
  Age: 30 Year
  Sex: Male

DRUGS (1)
  1. CIBINQO [Suspect]
     Active Substance: ABROCITINIB
     Indication: Dermatitis atopic
     Dosage: 100 MG, 1X/DAY
     Route: 048
     Dates: start: 20220719

REACTIONS (3)
  - Blood immunoglobulin E increased [Unknown]
  - Ageusia [Unknown]
  - Somnolence [Unknown]

NARRATIVE: CASE EVENT DATE: 20220701
